FAERS Safety Report 10226978 (Version 1)
Quarter: 2014Q2

REPORT INFORMATION
  Report Type: Report from Study
  Country: CN (occurrence: CN)
  Receive Date: 20140610
  Receipt Date: 20140610
  Transmission Date: 20141212
  Serious: Yes (Other)
  Sender: FDA-Public Use
  Company Number: CN-BRISTOL-MYERS SQUIBB COMPANY-20949210

PATIENT
  Age: 40 Year
  Sex: Female

DRUGS (1)
  1. BYETTA [Suspect]
     Indication: TYPE 2 DIABETES MELLITUS
     Dosage: INITIAL DOSE-5MCG,INCRSD ON 15MAY2014
     Route: 058
     Dates: start: 20140414

REACTIONS (6)
  - Nausea [Unknown]
  - Vomiting [Unknown]
  - Abdominal discomfort [Unknown]
  - Headache [Unknown]
  - Pyrexia [Unknown]
  - Haematuria [Unknown]
